FAERS Safety Report 9510937 (Version 2)
Quarter: 2013Q4

REPORT INFORMATION
  Report Type: Spontaneous
  Country: BR (occurrence: BR)
  Receive Date: 20130910
  Receipt Date: 20131113
  Transmission Date: 20140711
  Serious: Yes (Hospitalization, Other)
  Sender: FDA-Public Use
  Company Number: BR-ASTRAZENECA-2013SE67314

PATIENT
  Age: 76 Year
  Sex: Male
  Weight: 58 kg

DRUGS (4)
  1. NEXIUM [Suspect]
     Dosage: 40 MG GENERIC DAILY
     Route: 048
     Dates: start: 201304, end: 201305
  2. NEXIUM [Suspect]
     Route: 048
     Dates: start: 201305, end: 20131031
  3. NEXIUM [Suspect]
     Dosage: GENERIC
     Route: 048
  4. XARELTO [Concomitant]
     Dates: start: 201304, end: 201305

REACTIONS (2)
  - Arrhythmia [Recovered/Resolved]
  - Coronary artery occlusion [Recovered/Resolved]
